FAERS Safety Report 16436638 (Version 1)
Quarter: 2019Q2

REPORT INFORMATION
  Report Type: Spontaneous
  Country: US (occurrence: US)
  Receive Date: 20190614
  Receipt Date: 20190614
  Transmission Date: 20190711
  Serious: No
  Sender: FDA-Public Use
  Company Number: US-JNJFOC-20170213902

PATIENT
  Sex: Female
  Weight: 48.08 kg

DRUGS (1)
  1. TYLENOL EXTRA STRENGTH [Suspect]
     Active Substance: ACETAMINOPHEN
     Indication: ARTHRITIS
     Route: 048
     Dates: start: 201702, end: 20170211

REACTIONS (2)
  - Therapeutic product effect incomplete [Unknown]
  - Therapeutic product effect delayed [Unknown]
